FAERS Safety Report 21522565 (Version 2)
Quarter: 2022Q4

REPORT INFORMATION
  Report Type: Spontaneous
  Country: US (occurrence: US)
  Receive Date: 20221029
  Receipt Date: 20221115
  Transmission Date: 20230113
  Serious: No
  Sender: FDA-Public Use
  Company Number: US-UNITED THERAPEUTICS-UNT-2022-023901

PATIENT
  Sex: Female
  Weight: 65.76 kg

DRUGS (7)
  1. TYVASO [Suspect]
     Active Substance: TREPROSTINIL
     Indication: Pulmonary arterial hypertension
     Dosage: UNK
     Dates: start: 20220906
  2. TYVASO [Suspect]
     Active Substance: TREPROSTINIL
     Dosage: 108 ?G, QID
     Dates: start: 2022
  3. TYVASO [Suspect]
     Active Substance: TREPROSTINIL
     Dosage: UNK
  4. TYVASO [Suspect]
     Active Substance: TREPROSTINIL
     Dosage: 18-108 ?G, QID
     Dates: start: 2022
  5. TYVASO [Suspect]
     Active Substance: TREPROSTINIL
     Dosage: 144 ?G, QID
     Dates: start: 2022
  6. TADALAFIL [Concomitant]
     Active Substance: TADALAFIL
     Indication: Product used for unknown indication
     Dosage: UNK
     Route: 065
  7. LETAIRIS [Concomitant]
     Active Substance: AMBRISENTAN
     Indication: Product used for unknown indication
     Dosage: UNK
     Route: 065

REACTIONS (7)
  - Headache [Unknown]
  - Illness [Unknown]
  - Product after taste [Unknown]
  - Flushing [Unknown]
  - Device malfunction [Unknown]
  - Device malfunction [Unknown]
  - Off label use [Unknown]

NARRATIVE: CASE EVENT DATE: 20220101
